FAERS Safety Report 12901846 (Version 3)
Quarter: 2017Q3

REPORT INFORMATION
  Report Type: Spontaneous
  Country: US (occurrence: US)
  Receive Date: 20161102
  Receipt Date: 20170815
  Transmission Date: 20171127
  Serious: Yes (Death, Other)
  Sender: FDA-Public Use
  Company Number: US-ROCHE-1849463

PATIENT
  Age: 55 Year
  Sex: Male

DRUGS (2)
  1. AUGMENTIN [Concomitant]
     Active Substance: AMOXICILLIN\CLAVULANATE POTASSIUM
     Indication: OSTEOMYELITIS CHRONIC
     Dosage: 875-125 MG
     Route: 048
     Dates: end: 201510
  2. ERIVEDGE [Suspect]
     Active Substance: VISMODEGIB
     Indication: BASAL CELL CARCINOMA
     Route: 048
     Dates: start: 201508, end: 201511

REACTIONS (7)
  - Metastatic squamous cell carcinoma [Fatal]
  - Alopecia [Unknown]
  - Dysgeusia [Unknown]
  - Squamous cell carcinoma [Fatal]
  - Back pain [Not Recovered/Not Resolved]
  - Weight decreased [Unknown]
  - Muscle spasms [Unknown]

NARRATIVE: CASE EVENT DATE: 201510
